FAERS Safety Report 8790906 (Version 2)
Quarter: 2012Q4

REPORT INFORMATION
  Report Type: Spontaneous
  Country: US (occurrence: None)
  Receive Date: 20120906
  Receipt Date: 20120907
  Transmission Date: 20130627
  Serious: Yes (Hospitalization)
  Sender: FDA-Public Use
  Company Number: JPI-P-024633

PATIENT
  Age: 57 Year
  Sex: Male

DRUGS (8)
  1. XYREM [Suspect]
     Indication: CATAPLEXY
     Dosage: (2.25 gm, 2 in 1 D)
     Route: 048
     Dates: start: 20040621, end: 20040720
  2. XYREM [Suspect]
     Indication: CATAPLEXY
     Dosage: (3.75, 2 in 1 d)
     Route: 048
     Dates: start: 20040721, end: 20040929
  3. XYREM [Suspect]
     Indication: CATAPLEXY
     Dosage: (6 gm,2 in 1 d)
     Route: 048
     Dates: start: 20040930, end: 20060221
  4. XYREM [Suspect]
     Indication: CATAPLEXY
     Dosage: (9 gm,2 in 1 d)
     Route: 048
     Dates: start: 20060222, end: 20061114
  5. XYREM [Suspect]
     Indication: CATAPLEXY
     Dosage: (4.5 gm,2 in 1 d)
     Route: 048
     Dates: start: 20061115, end: 20070508
  6. XYREM [Suspect]
     Indication: CATAPLEXY
     Dosage: (6 gm,2 in 1 d)
     Route: 048
     Dates: start: 20070509, end: 20071119
  7. XYREM [Suspect]
     Indication: CATAPLEXY
     Dosage: (4.5 gm,2 in 1 d)
     Route: 048
     Dates: start: 20071120, end: 20120323
  8. XYREM [Suspect]
     Indication: CATAPLEXY
     Dosage: (4.5 gm,2 in 1 d)
     Route: 048
     Dates: start: 201208

REACTIONS (3)
  - Road traffic accident [None]
  - Limb injury [None]
  - Leg amputation [None]
